FAERS Safety Report 4822542-7 (Version None)
Quarter: 2005Q4

REPORT INFORMATION
  Report Type: 
  Country: None (occurrence: None)
  Receive Date: 20051108
  Receipt Date: 20050930
  Transmission Date: 20060501
  Serious: Yes (Other)
  Sender: FDA-Public Use
  Company Number: 2005UW15005

PATIENT
  Age: 13 Year
  Sex: Male
  Weight: 69.5 kg

DRUGS (1)
  1. PULMICORT [Suspect]
     Route: 055

REACTIONS (5)
  - BRONCHOSPASM [None]
  - ERYTHEMA [None]
  - LARYNGOSPASM [None]
  - PRURITUS [None]
  - RASH ERYTHEMATOUS [None]
